FAERS Safety Report 10727133 (Version 1)
Quarter: 2015Q1

REPORT INFORMATION
  Report Type: Spontaneous
  Country: US (occurrence: None)
  Receive Date: 20150120
  Receipt Date: 20150120
  Transmission Date: 20150721
  Serious: Yes (Hospitalization)
  Sender: FDA-Public Use
  Company Number: None

PATIENT
  Age: 65 Year
  Sex: Male
  Weight: 65.77 kg

DRUGS (8)
  1. METOPROLOL SUCCINATE. [Concomitant]
     Active Substance: METOPROLOL SUCCINATE
  2. MUCINEX-DM [Concomitant]
  3. FENTANYL TRANSDERAML PATCH [Concomitant]
  4. PREDNISONE. [Concomitant]
     Active Substance: PREDNISONE
  5. ZOLPIDEM [Concomitant]
     Active Substance: ZOLPIDEM\ZOLPIDEM TARTRATE
  6. REMICADE [Suspect]
     Active Substance: INFLIXIMAB
     Indication: COLITIS ULCERATIVE
     Dosage: 5MG/KG EVERY 8 WEEKS INTRAVENOUS
     Route: 042
     Dates: start: 20150116, end: 20150116
  7. HYDROMORPHONE [Concomitant]
     Active Substance: HYDROMORPHONE
  8. LORAZEPAM. [Concomitant]
     Active Substance: LORAZEPAM

REACTIONS (4)
  - Chills [None]
  - Hypersensitivity [None]
  - Blood pressure decreased [None]
  - Flushing [None]

NARRATIVE: CASE EVENT DATE: 20150116
